FAERS Safety Report 9843025 (Version 2)
Quarter: 2014Q1

REPORT INFORMATION
  Report Type: Report from Study
  Country: US (occurrence: US)
  Receive Date: 20140124
  Receipt Date: 20140131
  Transmission Date: 20141002
  Serious: Yes (Hospitalization)
  Sender: FDA-Public Use
  Company Number: US-US-EMD SERONO, INC.-7263568

PATIENT
  Age: 38 Year
  Sex: Female
  Weight: 77 kg

DRUGS (2)
  1. REBIF [Suspect]
     Indication: PRODUCT USED FOR UNKNOWN INDICATION
     Route: 058
     Dates: start: 20131003, end: 20131128
  2. REBIF [Suspect]
     Route: 058
     Dates: start: 20140109

REACTIONS (5)
  - Pneumonia [Unknown]
  - Abasia [Recovered/Resolved]
  - Aphasia [Recovered/Resolved]
  - Influenza like illness [Not Recovered/Not Resolved]
  - Injection site mass [Not Recovered/Not Resolved]
